FAERS Safety Report 9011211 (Version 1)
Quarter: 2013Q1

REPORT INFORMATION
  Report Type: Spontaneous
  Country: US (occurrence: US)
  Receive Date: 20130109
  Receipt Date: 20130109
  Transmission Date: 20140127
  Serious: No
  Sender: FDA-Public Use
  Company Number: US-PFIZER INC-2013004702

PATIENT
  Sex: Female

DRUGS (2)
  1. NORDETTE [Suspect]
     Indication: EX-TOBACCO USER
     Dosage: UNK
  2. NORDETTE [Suspect]
     Indication: EX-TOBACCO USER
     Dosage: UNK

REACTIONS (1)
  - Dependence [Unknown]
